FAERS Safety Report 15827039 (Version 1)
Quarter: 2019Q1

REPORT INFORMATION
  Report Type: Spontaneous
  Country: US (occurrence: US)
  Receive Date: 20190115
  Receipt Date: 20190115
  Transmission Date: 20190417
  Serious: Yes (Hospitalization)
  Sender: FDA-Public Use
  Company Number: US-UPSHER-SMITH LABORATORIES, LLC-2019USL00001

PATIENT
  Age: 48 Year
  Sex: Male

DRUGS (4)
  1. CAFFEINE. [Suspect]
     Active Substance: CAFFEINE
     Dosage: 560 MG, 1X/DAY
     Route: 048
  2. TESTOSTERONE. [Suspect]
     Active Substance: TESTOSTERONE
     Indication: PERFORMANCE ENHANCING PRODUCT USE
     Route: 065
  3. AMPHETAMINE/DEXTROAMPHETAMINE [Suspect]
     Active Substance: AMPHETAMINE\DEXTROAMPHETAMINE
     Indication: PERFORMANCE ENHANCING PRODUCT USE
     Dosage: 60 MG, 1X/DAY
     Route: 065
  4. CAFFEINE. [Suspect]
     Active Substance: CAFFEINE
     Dosage: 80 MG, 1X/DAY
     Route: 048

REACTIONS (3)
  - Intentional product misuse [Unknown]
  - Psychotic disorder [Recovered/Resolved]
  - Drug interaction [Recovered/Resolved]
